FAERS Safety Report 22629101 (Version 1)
Quarter: 2023Q2

REPORT INFORMATION
  Report Type: Report from Study
  Country: US (occurrence: US)
  Receive Date: 20230622
  Receipt Date: 20230622
  Transmission Date: 20230721
  Serious: Yes (Other)
  Sender: FDA-Public Use
  Company Number: US-EXELIXIS-CABO-23063647

PATIENT
  Age: 36 Year
  Sex: Female
  Weight: 38.549 kg

DRUGS (1)
  1. CABOMETYX [Suspect]
     Active Substance: CABOZANTINIB S-MALATE
     Indication: Renal cancer
     Dosage: 60 MG, QD
     Route: 048
     Dates: start: 20230414

REACTIONS (8)
  - Full blood count abnormal [Unknown]
  - Heart rate increased [Unknown]
  - Blood iron decreased [Unknown]
  - Hypophagia [Recovering/Resolving]
  - Pruritus [Unknown]
  - Asthenia [Unknown]
  - Diarrhoea [Recovering/Resolving]
  - Nausea [Unknown]

NARRATIVE: CASE EVENT DATE: 20230501
